FAERS Safety Report 18547937 (Version 9)
Quarter: 2021Q3

REPORT INFORMATION
  Report Type: Report from Study
  Country: US (occurrence: US)
  Receive Date: 20201126
  Receipt Date: 20210823
  Transmission Date: 20211014
  Serious: Yes (Other)
  Sender: FDA-Public Use
  Company Number: NVSC2020US308982

PATIENT

DRUGS (1)
  1. KESIMPTA [Suspect]
     Active Substance: OFATUMUMAB
     Indication: MULTIPLE SCLEROSIS
     Dosage: UNK
     Route: 065

REACTIONS (8)
  - Memory impairment [Unknown]
  - Hot flush [Unknown]
  - Chills [Unknown]
  - Feeling hot [Recovered/Resolved]
  - Dysphonia [Unknown]
  - Sleep disorder [Unknown]
  - Seizure [Unknown]
  - Cough [Unknown]
